FAERS Safety Report 11795424 (Version 3)
Quarter: 2016Q2

REPORT INFORMATION
  Report Type: Spontaneous
  Country: US (occurrence: US)
  Receive Date: 20151202
  Receipt Date: 20160404
  Transmission Date: 20160815
  Serious: Yes (Other)
  Sender: FDA-Public Use
  Company Number: US-MDT-ADR-2015-02277

PATIENT
  Age: 51 Year
  Sex: Female

DRUGS (6)
  1. COMPOUNDED BACLOFEN [Suspect]
     Active Substance: BACLOFEN
     Dosage: 22.65MCG/DAY
     Route: 037
  2. BUPIVACAINE. [Suspect]
     Active Substance: BUPIVACAINE
     Dosage: 7.498 MG/DAY
     Route: 037
  3. MORPHINE [Suspect]
     Active Substance: MORPHINE
     Dosage: 0.2499 MG/DAY
     Route: 037
  4. BUPIVACAINE. [Suspect]
     Active Substance: BUPIVACAINE
     Dosage: 4.529MG/DAY
     Route: 037
  5. MORPHINE [Suspect]
     Active Substance: MORPHINE
     Dosage: 0.1510MG/DAY
     Route: 037
  6. COMPOUNDED BACLOFEN [Suspect]
     Active Substance: BACLOFEN
     Dosage: 37.49 MCG/DAY
     Route: 037

REACTIONS (3)
  - Cerebrospinal fluid leakage [Recovered/Resolved with Sequelae]
  - Nausea [Recovered/Resolved with Sequelae]
  - Post lumbar puncture syndrome [Recovered/Resolved with Sequelae]

NARRATIVE: CASE EVENT DATE: 20151103
